FAERS Safety Report 7354990-8 (Version None)
Quarter: 2011Q1

REPORT INFORMATION
  Report Type: 
  Country: None (occurrence: None)
  Receive Date: 20110316
  Receipt Date: 20110304
  Transmission Date: 20110831
  Serious: Yes (Death)
  Sender: FDA-Public Use
  Company Number: US-PFIZER INC-2010039972

PATIENT
  Sex: Female
  Weight: 88 kg

DRUGS (14)
  1. VITAMIN B [Concomitant]
     Indication: SUPPLEMENTATION THERAPY
     Dosage: UNK
     Route: 048
  2. POTASSIUM [Concomitant]
     Indication: SUPPLEMENTATION THERAPY
     Dosage: UNK
     Route: 048
     Dates: start: 20050101
  3. SYNTHROID [Concomitant]
     Indication: HYPERTHYROIDISM
     Dosage: UNK
     Route: 048
     Dates: start: 20000101
  4. PLAVIX [Concomitant]
     Indication: ARTERIOSCLEROSIS
     Dosage: UNK
     Dates: start: 20030101
  5. NITROGLYCERIN [Concomitant]
     Indication: ARTERIOSCLEROSIS
     Dosage: UNK
     Route: 060
     Dates: start: 20030101
  6. ZOCOR [Concomitant]
     Indication: HYPERCHOLESTEROLAEMIA
     Dosage: UNK
     Route: 048
     Dates: start: 20020101
  7. ACETYLSALICYLIC ACID [Concomitant]
     Indication: ARTERIOSCLEROSIS
     Dosage: 81 MG, UNK
     Route: 048
     Dates: start: 20030101
  8. LASIX [Concomitant]
     Indication: HYPERTENSION
     Dosage: UNK
     Route: 048
     Dates: start: 20040101
  9. CALTRATE + D [Concomitant]
     Indication: SUPPLEMENTATION THERAPY
     Dosage: UNK
     Route: 048
  10. IMDUR [Concomitant]
     Indication: ARTERIOSCLEROSIS
     Dosage: UNK
     Route: 048
     Dates: start: 19990101
  11. ATENOLOL [Concomitant]
     Indication: HYPERTENSION
     Dosage: UNK
     Route: 048
     Dates: start: 20020101
  12. PROTONIX [Concomitant]
     Indication: PROPHYLAXIS
     Dosage: UNK
     Route: 048
     Dates: start: 20050101
  13. EXEMESTANE [Suspect]
     Indication: BREAST CANCER
     Dosage: 25 MG, 1X/DAY
     Route: 048
     Dates: start: 20051005
  14. EPINASTINE HYDROCHLORIDE [Concomitant]
     Dosage: UNK
     Dates: start: 20100101

REACTIONS (1)
  - DEATH [None]
